FAERS Safety Report 10516252 (Version 3)
Quarter: 2015Q1

REPORT INFORMATION
  Report Type: Spontaneous
  Country: GB (occurrence: GB)
  Receive Date: 20141014
  Receipt Date: 20150204
  Transmission Date: 20150720
  Serious: Yes (Hospitalization, Other)
  Sender: FDA-Public Use
  Company Number: GB-BRACCO-000932

PATIENT
  Age: 83 Year
  Sex: Male

DRUGS (1)
  1. NIOPAM [Suspect]
     Active Substance: IOPAMIDOL
     Indication: ANGIOGRAM
     Route: 013
     Dates: start: 20141001, end: 20141001

REACTIONS (3)
  - Agitation [Recovered/Resolved]
  - Confusional state [None]
  - Dysarthria [Recovered/Resolved]

NARRATIVE: CASE EVENT DATE: 20141001
